FAERS Safety Report 25913669 (Version 2)
Quarter: 2025Q4

REPORT INFORMATION
  Report Type: Spontaneous
  Country: US (occurrence: US)
  Receive Date: 20251013
  Receipt Date: 20251021
  Transmission Date: 20260118
  Serious: Yes (Other)
  Sender: STALLERGENES
  Company Number: US-STALCOR-2025-AER-02820

PATIENT
  Age: 5 Year
  Sex: Male

DRUGS (1)
  1. PALFORZIA [Suspect]
     Active Substance: PEANUT
     Indication: Food allergy
     Dosage: DISPENSED ON 03-OCT-2025
     Route: 048
     Dates: end: 202510

REACTIONS (3)
  - Dyspnoea [Unknown]
  - Cough [Unknown]
  - Abdominal pain upper [Unknown]
